FAERS Safety Report 20756366 (Version 2)
Quarter: 2023Q4

REPORT INFORMATION
  Report Type: Spontaneous
  Country: CN (occurrence: CN)
  Receive Date: 20220427
  Receipt Date: 20231006
  Transmission Date: 20240110
  Serious: Yes (Life-Threatening, Hospitalization, Other)
  Sender: FDA-Public Use
  Company Number: CN-BAYER-2022A060282

PATIENT
  Age: 56 Year
  Sex: Female
  Weight: 53 kg

DRUGS (1)
  1. ULTRAVIST [Suspect]
     Active Substance: IOPROMIDE
     Dosage: 20 MG, QD
     Route: 042
     Dates: start: 20220303, end: 20220303

REACTIONS (6)
  - Hypovolaemic shock [Recovering/Resolving]
  - Anaphylactic shock [Recovering/Resolving]
  - Mental disorder [Recovering/Resolving]
  - Loss of consciousness [Recovering/Resolving]
  - Cold sweat [Recovering/Resolving]
  - Urinary incontinence [Recovering/Resolving]

NARRATIVE: CASE EVENT DATE: 20220303
